FAERS Safety Report 12797349 (Version 1)
Quarter: 2016Q3

REPORT INFORMATION
  Report Type: Report from Study
  Country: US (occurrence: US)
  Receive Date: 20160929
  Receipt Date: 20160929
  Transmission Date: 20161109
  Serious: Yes (Life-Threatening, Hospitalization, Other)
  Sender: FDA-Public Use
  Company Number: US-ROCHE-1007912

PATIENT
  Age: 66 Year
  Sex: Female
  Weight: 103 kg

DRUGS (3)
  1. BEVACIZUMAB [Suspect]
     Active Substance: BEVACIZUMAB
     Indication: ENDOMETRIAL CANCER
     Dosage: OVER 30-90 MINUTES ON DAY 1 (STARTING WITH CYCLE 2 FOR THOSE PTS ENTERING POST SURGERY) X 6 CYCLES,
     Route: 042
     Dates: start: 20110329, end: 20110621
  2. IXABEPILONE [Suspect]
     Active Substance: IXABEPILONE
     Indication: ENDOMETRIAL CANCER
     Dosage: OVER 1 HOUR ON DAY 1 X 6 CYCLES. LAST DOSE PRIOR TO SAE: 21 JUN 2011
     Route: 065
     Dates: start: 20110329
  3. CARBOPLATIN. [Suspect]
     Active Substance: CARBOPLATIN
     Indication: ENDOMETRIAL CANCER
     Dosage: AUC 5 OVER 30 MINUTES ON DAY 1 X 6 CYCLES. LAST DOSE PRIOR TO SAE: 21 JUN 2011
     Route: 065
     Dates: start: 20110329

REACTIONS (9)
  - White blood cell count decreased [Recovered/Resolved with Sequelae]
  - Neutrophil count decreased [Recovered/Resolved with Sequelae]
  - Dehydration [Recovered/Resolved with Sequelae]
  - Pyrexia [Recovered/Resolved with Sequelae]
  - Muscular weakness [Recovering/Resolving]
  - Cystitis [Recovering/Resolving]
  - Fatigue [Unknown]
  - Platelet count decreased [Recovering/Resolving]
  - Anaemia [Recovering/Resolving]

NARRATIVE: CASE EVENT DATE: 20110705
